FAERS Safety Report 5404485-3 (Version None)
Quarter: 2007Q3

REPORT INFORMATION
  Report Type: 
  Country: None (occurrence: None)
  Receive Date: 20070730
  Receipt Date: 20070704
  Transmission Date: 20080115
  Serious: Yes (Death)
  Sender: FDA-Public Use
  Company Number: 6035665

PATIENT
  Age: 40 Year
  Sex: Male

DRUGS (5)
  1. FLUOXETINE [Suspect]
     Indication: MAJOR DEPRESSION
     Dosage: (60 MG) ORAL
     Route: 048
     Dates: start: 20040401
  2. ZYPREXA [Suspect]
     Indication: PSYCHOTIC DISORDER
     Dosage: (20 MG) ORAL
     Route: 048
     Dates: start: 20040401
  3. DIAZEPAM [Concomitant]
  4. MIRTAZAPINE [Concomitant]
  5. TEMAZEPAM [Concomitant]

REACTIONS (5)
  - COUGH [None]
  - DEPRESSED LEVEL OF CONSCIOUSNESS [None]
  - DRUG LEVEL INCREASED [None]
  - RESPIRATORY DEPRESSION [None]
  - SNEEZING [None]
